FAERS Safety Report 25817234 (Version 1)
Quarter: 2025Q3

REPORT INFORMATION
  Report Type: Spontaneous
  Country: US (occurrence: None)
  Receive Date: 20250917
  Receipt Date: 20250917
  Transmission Date: 20251020
  Serious: Yes (Other)
  Sender: FDA-CTU
  Company Number: None

PATIENT
  Age: 77 Year
  Sex: Female
  Weight: 81.65 kg

DRUGS (1)
  1. REPATHA [Suspect]
     Active Substance: EVOLOCUMAB

REACTIONS (2)
  - Rash [None]
  - Vasodilatation [None]

NARRATIVE: CASE EVENT DATE: 20250915
